FAERS Safety Report 15561315 (Version 1)
Quarter: 2018Q4

REPORT INFORMATION
  Report Type: Spontaneous
  Country: US (occurrence: US)
  Receive Date: 20181025
  Receipt Date: 20181025
  Transmission Date: 20190205
  Serious: Yes (Disabling)
  Sender: FDA-Public Use
  Company Number: None

PATIENT
  Age: 36 Year
  Sex: Female
  Weight: 86.4 kg

DRUGS (1)
  1. MONSELS SOLUTION [Suspect]
     Active Substance: FERRIC SUBSULFATE
     Dates: start: 20181024

REACTIONS (6)
  - Burning sensation [None]
  - Medical device site reaction [None]
  - Swelling [None]
  - Emotional distress [None]
  - Dysuria [None]
  - Anxiety [None]

NARRATIVE: CASE EVENT DATE: 20181024
